FAERS Safety Report 5919302-2 (Version None)
Quarter: 2008Q4

REPORT INFORMATION
  Report Type: 
  Country: None (occurrence: None)
  Receive Date: 20081015
  Receipt Date: 20081006
  Transmission Date: 20090506
  Serious: Yes (Other)
  Sender: FDA-Public Use
  Company Number: PHHY2008JP20542

PATIENT
  Sex: Male
  Weight: 78 kg

DRUGS (1)
  1. TEGRETOL [Suspect]
     Indication: EPILEPSY
     Dosage: 100 MG, BID
     Route: 048
     Dates: start: 20080507, end: 20080904

REACTIONS (6)
  - APLASIA PURE RED CELL [None]
  - BRAIN NEOPLASM [None]
  - HAEMOGLOBIN DECREASED [None]
  - MALAISE [None]
  - RED BLOOD CELL COUNT DECREASED [None]
  - SURGERY [None]
